FAERS Safety Report 14378148 (Version 14)
Quarter: 2020Q4

REPORT INFORMATION
  Report Type: Spontaneous
  Country: US (occurrence: US)
  Receive Date: 20180111
  Receipt Date: 20201207
  Transmission Date: 20210113
  Serious: No
  Sender: FDA-Public Use
  Company Number: US-PFIZER INC-2018009722

PATIENT
  Age: 74 Year
  Sex: Female
  Weight: 107.48 kg

DRUGS (8)
  1. IBRANCE [Suspect]
     Active Substance: PALBOCICLIB
     Dosage: 125 MG, 1X/DAY (ONE AT NIGHT)
  2. IBRANCE [Suspect]
     Active Substance: PALBOCICLIB
     Dosage: 125 MG, DAILY
     Route: 048
  3. TYLENOL EXTRA STRENGTH [Concomitant]
     Active Substance: ACETAMINOPHEN
     Indication: PAIN
     Dosage: 1 DF, UNK [ONE TABLET]
  4. LETROZOLE. [Suspect]
     Active Substance: LETROZOLE
     Indication: BREAST CANCER METASTATIC
     Dosage: UNK
     Dates: end: 20201112
  5. CALTRATE [CALCIUM CARBONATE;COLECALCIFEROL] [Concomitant]
     Dosage: UNK
  6. IBRANCE [Suspect]
     Active Substance: PALBOCICLIB
     Dosage: 125 MG, 1X/DAY
     Route: 048
     Dates: start: 201712, end: 201712
  7. IBRANCE [Suspect]
     Active Substance: PALBOCICLIB
     Dosage: 125 MG, CYCLIC (3 WEEKS ON AND 1 WEEK OFF)
     Route: 048
  8. IBRANCE [Suspect]
     Active Substance: PALBOCICLIB
     Indication: BREAST CANCER METASTATIC
     Dosage: UNK
     Dates: start: 201612, end: 202011

REACTIONS (27)
  - Hypokinesia [Unknown]
  - Cystitis [Recovering/Resolving]
  - Influenza [Unknown]
  - Rash [Recovered/Resolved]
  - Dry skin [Recovered/Resolved]
  - Neoplasm progression [Not Recovered/Not Resolved]
  - Nerve compression [Unknown]
  - Bone pain [Unknown]
  - Weight increased [Unknown]
  - Blood glucose increased [Recovering/Resolving]
  - Headache [Unknown]
  - Nausea [Unknown]
  - Rash macular [Unknown]
  - Malaise [Unknown]
  - Blood pressure increased [Unknown]
  - Nasopharyngitis [Unknown]
  - Muscle strain [Unknown]
  - Laryngitis [Unknown]
  - Hypersensitivity [Unknown]
  - Pruritus [Unknown]
  - Rhinorrhoea [Unknown]
  - Diarrhoea [Recovering/Resolving]
  - Memory impairment [Unknown]
  - Seasonal allergy [Unknown]
  - Urticaria [Recovered/Resolved]
  - Alopecia [Unknown]
  - Blood pressure fluctuation [Unknown]

NARRATIVE: CASE EVENT DATE: 201712
